FAERS Safety Report 15085011 (Version 2)
Quarter: 2018Q3

REPORT INFORMATION
  Report Type: Spontaneous
  Country: JP (occurrence: JP)
  Receive Date: 20180628
  Receipt Date: 20180719
  Transmission Date: 20181010
  Serious: Yes (Other)
  Sender: FDA-Public Use
  Company Number: JP-ELI_LILLY_AND_COMPANY-JP201806009576

PATIENT
  Age: 82 Year
  Sex: Male

DRUGS (4)
  1. AZILVA [Concomitant]
     Active Substance: AZILSARTAN KAMEDOXOMIL
     Indication: HYPERTENSION
     Dosage: 25 MG, DAILY
     Route: 048
     Dates: start: 20180213, end: 20180428
  2. BENET [Concomitant]
     Active Substance: RISEDRONATE SODIUM
     Indication: OSTEOPOROSIS
     Dosage: 75 MG, UNK
     Route: 065
     Dates: start: 20180315
  3. ALINAMIN F                         /00257801/ [Concomitant]
     Indication: CERVICAL RADICULOPATHY
     Dosage: 75 MG, DAILY
     Route: 048
     Dates: start: 20180119, end: 20180421
  4. FORTEO [Suspect]
     Active Substance: TERIPARATIDE
     Indication: OSTEOPOROSIS
     Dosage: 20 UG, DAILY
     Route: 058
     Dates: start: 20171106, end: 201803

REACTIONS (3)
  - Metastases to bone [Unknown]
  - Prostate cancer [Unknown]
  - Fall [Unknown]

NARRATIVE: CASE EVENT DATE: 201804
